FAERS Safety Report 8361507-8 (Version None)
Quarter: 2012Q2

REPORT INFORMATION
  Report Type: 
  Country: None (occurrence: None)
  Receive Date: 20120515
  Receipt Date: 20120503
  Transmission Date: 20120825
  Serious: Yes (Hospitalization)
  Sender: FDA-Public Use
  Company Number: FR-ELI_LILLY_AND_COMPANY-FR201205000922

PATIENT
  Age: 52 Year
  Sex: Male

DRUGS (6)
  1. ALPRAZOLAM [Concomitant]
     Indication: MENTAL DISORDER
     Dosage: 0.75 MG, QD
     Dates: end: 20120121
  2. PRAZEPAM [Concomitant]
  3. ESCITALOPRAM [Concomitant]
     Dosage: 20 MG, UNK
     Dates: start: 20101001, end: 20110101
  4. ANAFRANIL [Concomitant]
     Indication: DEPRESSION
     Dosage: 37.5 MG, QD
     Dates: start: 20120101, end: 20120121
  5. ZYPREXA [Suspect]
     Indication: DEPRESSION
     Dosage: 5 MG, QD
     Route: 048
     Dates: start: 20111123, end: 20120105
  6. RASILEZ HCT [Concomitant]
     Indication: HYPERTENSION
     Dosage: UNK
     Dates: end: 20120121

REACTIONS (1)
  - HEPATIC FAILURE [None]
